FAERS Safety Report 23416723 (Version 1)
Quarter: 2024Q1

REPORT INFORMATION
  Report Type: Spontaneous
  Country: US (occurrence: None)
  Receive Date: 20240118
  Receipt Date: 20240118
  Transmission Date: 20240410
  Serious: Yes (Hospitalization)
  Sender: FDA-Public Use
  Company Number: US-ROCHE-3493537

PATIENT
  Age: 55 Year
  Sex: Female

DRUGS (2)
  1. ACTIVASE [Suspect]
     Active Substance: ALTEPLASE
     Indication: Ischaemic stroke
     Route: 042
     Dates: start: 2018, end: 2018
  2. BLOOD THINNER (UNK INGREDIENTS) [Concomitant]
     Indication: Cerebrovascular accident
     Dates: start: 2018

REACTIONS (1)
  - Respiratory arrest [Unknown]
